FAERS Safety Report 25473228 (Version 2)
Quarter: 2025Q3

REPORT INFORMATION
  Report Type: Spontaneous
  Country: US (occurrence: US)
  Receive Date: 20250624
  Receipt Date: 20250708
  Transmission Date: 20251020
  Serious: No
  Sender: BAUSCH AND LOMB
  Company Number: US-BAUSCH-BL-2025-007456

PATIENT
  Age: 94 Year
  Sex: Male

DRUGS (4)
  1. IPRATROPIUM BROMIDE [Suspect]
     Active Substance: IPRATROPIUM BROMIDE
     Indication: Rhinitis allergic
     Route: 045
  2. IPRATROPIUM BROMIDE [Suspect]
     Active Substance: IPRATROPIUM BROMIDE
     Route: 045
     Dates: end: 20250502
  3. IPRATROPIUM BROMIDE [Suspect]
     Active Substance: IPRATROPIUM BROMIDE
     Route: 045
     Dates: start: 20250611
  4. WARFARIN [Suspect]
     Active Substance: WARFARIN
     Indication: Factor I deficiency
     Route: 065
     Dates: start: 2020

REACTIONS (2)
  - Epistaxis [Recovered/Resolved]
  - Haemorrhage [Recovered/Resolved]

NARRATIVE: CASE EVENT DATE: 20250502
